FAERS Safety Report 13159344 (Version 1)
Quarter: 2017Q1

REPORT INFORMATION
  Report Type: Spontaneous
  Country: US (occurrence: US)
  Receive Date: 20170127
  Receipt Date: 20170127
  Transmission Date: 20170428
  Serious: No
  Sender: FDA-Public Use
  Company Number: GXBR2016US002241

PATIENT
  Sex: Female
  Weight: 52.15 kg

DRUGS (2)
  1. IMIQUIMOD. [Suspect]
     Active Substance: IMIQUIMOD
     Indication: PROPHYLAXIS
     Dosage: UNK DF (3 TIMES A WEEK ON LEGS AND 2 TIMES A WEEK OF FACE), UNK
     Route: 061
     Dates: start: 20160524
  2. CREON [Concomitant]
     Active Substance: PANCRELIPASE AMYLASE\PANCRELIPASE LIPASE\PANCRELIPASE PROTEASE
     Indication: PANCREATIC DISORDER
     Dosage: 36000 U, UNK
     Route: 048

REACTIONS (2)
  - Erythema [Not Recovered/Not Resolved]
  - Pain [Not Recovered/Not Resolved]
